FAERS Safety Report 9038248 (Version 1)
Quarter: 2013Q1

REPORT INFORMATION
  Report Type: Spontaneous
  Country: US (occurrence: US)
  Receive Date: 20130129
  Receipt Date: 20130129
  Transmission Date: 20140127
  Serious: No
  Sender: FDA-Public Use
  Company Number: US-GLAXOSMITHKLINE-A0995293A

PATIENT
  Sex: Female

DRUGS (1)
  1. WELLBUTRIN [Suspect]
     Indication: PRODUCT USED FOR UNKNOWN INDICATION
     Dosage: 300MG PER DAY
     Route: 048
     Dates: start: 2004

REACTIONS (6)
  - Drug hypersensitivity [Unknown]
  - Drug ineffective [Unknown]
  - Dissociation [Unknown]
  - Loss of libido [Unknown]
  - Sluggishness [Unknown]
  - Amnesia [Unknown]
